FAERS Safety Report 4851423-8 (Version None)
Quarter: 2005Q4

REPORT INFORMATION
  Report Type: 
  Country: None (occurrence: None)
  Receive Date: 20051208
  Receipt Date: 20051124
  Transmission Date: 20060501
  Serious: Yes (Hospitalization)
  Sender: FDA-Public Use
  Company Number: HQWYE482023AUG04

PATIENT
  Age: 59 Year
  Sex: Male

DRUGS (9)
  1. RAPAMUNE [Suspect]
     Indication: PROPHYLAXIS AGAINST TRANSPLANT REJECTION
     Dosage: 2 MG 1X PER 1 DAY ORAL
     Route: 048
     Dates: start: 20040706
  2. RAPAMUNE [Suspect]
  3. CYCLOSPORINE [Concomitant]
  4. PREDNISONE [Concomitant]
  5. SULFAMETHOXAZOLE + TRIMETHOPRIM [Concomitant]
  6. NYSTATIN [Concomitant]
  7. PROPRANOLOL [Concomitant]
  8. AMLODIPINE [Concomitant]
  9. DEXCHLORPHENIRAMINE MALEATE [Concomitant]

REACTIONS (2)
  - FACE OEDEMA [None]
  - SUPERIOR VENA CAVAL OCCLUSION [None]
